FAERS Safety Report 8854621 (Version 1)
Quarter: 2012Q4

REPORT INFORMATION
  Report Type: 
  Country: US (occurrence: US)
  Receive Date: 20121023
  Receipt Date: 20121023
  Transmission Date: 20130627
  Serious: Yes (Other)
  Sender: FDA-Public Use
  Company Number: US-PFIZER INC-2012260731

PATIENT
  Age: 40 Year
  Sex: Male

DRUGS (7)
  1. XANAX [Suspect]
     Dosage: UNK
  2. DEPAKOTE [Suspect]
     Dosage: UNK
  3. PHENOBARBITAL [Suspect]
     Dosage: UNK
  4. PAXIL [Suspect]
     Dosage: UNK
  5. SERZONE [Suspect]
     Dosage: UNK
  6. LAMICTAL [Suspect]
     Dosage: UNK
  7. LUNESTA [Suspect]
     Dosage: UNK

REACTIONS (5)
  - Paranoia [Unknown]
  - Drug abuse [Unknown]
  - Euphoric mood [Unknown]
  - Abnormal behaviour [Unknown]
  - Hernia [Unknown]
